FAERS Safety Report 12741644 (Version 1)
Quarter: 2016Q3

REPORT INFORMATION
  Report Type: Spontaneous
  Country: US (occurrence: US)
  Receive Date: 20160914
  Receipt Date: 20160914
  Transmission Date: 20161109
  Serious: No
  Sender: FDA-Public Use
  Company Number: US-BAYER-2016-178616

PATIENT
  Age: 58 Year
  Sex: Female
  Weight: 49.89 kg

DRUGS (2)
  1. MIRALAX [Suspect]
     Active Substance: POLYETHYLENE GLYCOL 3350
     Indication: GASTROINTESTINAL DISORDER
     Dosage: 1 DF, QD
     Route: 048
     Dates: start: 2015
  2. ALOE VERA [Concomitant]
     Active Substance: ALOE VERA LEAF

REACTIONS (3)
  - Product use issue [None]
  - Circumstance or information capable of leading to device use error [None]
  - Product use issue [None]

NARRATIVE: CASE EVENT DATE: 2015
